FAERS Safety Report 8152079 (Version 3)
Quarter: 2013Q1

REPORT INFORMATION
  Report Type: Spontaneous
  Country: US (occurrence: US)
  Receive Date: 20110922
  Receipt Date: 20130312
  Transmission Date: 20140127
  Serious: No
  Sender: FDA-Public Use
  Company Number: US-ASTRAZENECA-2011SE28129

PATIENT
  Age: 48 Year
  Sex: Male
  Weight: 90.7 kg

DRUGS (9)
  1. SEROQUEL XR [Suspect]
     Indication: ATTENTION DEFICIT/HYPERACTIVITY DISORDER
     Route: 048
  2. SEROQUEL XR [Suspect]
     Indication: BIPOLAR DISORDER
     Route: 048
  3. SEROQUEL XR [Suspect]
     Indication: ATTENTION DEFICIT/HYPERACTIVITY DISORDER
     Route: 048
  4. SEROQUEL XR [Suspect]
     Indication: BIPOLAR DISORDER
     Route: 048
  5. LEXAPRO [Concomitant]
     Indication: DEPRESSION
  6. POLNAPIN [Concomitant]
     Indication: DEPRESSION
  7. POLNAPIN [Concomitant]
     Indication: SLEEP DISORDER
  8. CLONOPIN [Concomitant]
  9. ESCITALOPRAM [Concomitant]

REACTIONS (13)
  - Intervertebral disc degeneration [Unknown]
  - Agoraphobia [Unknown]
  - Body height decreased [Unknown]
  - Sleep disorder [Unknown]
  - Weight fluctuation [Unknown]
  - Gynaecomastia [Unknown]
  - Discomfort [Unknown]
  - Bipolar disorder [Unknown]
  - Hyperhidrosis [Unknown]
  - Psychotic disorder [Unknown]
  - Off label use [Unknown]
  - Drug dispensing error [Unknown]
  - Drug dose omission [Unknown]
